FAERS Safety Report 6978898-2 (Version None)
Quarter: 2010Q3

REPORT INFORMATION
  Report Type: 
  Country: None (occurrence: None)
  Receive Date: 20100913
  Receipt Date: 20100901
  Transmission Date: 20110219
  Serious: Yes (Hospitalization, Other)
  Sender: FDA-Public Use
  Company Number: BR-JNJFOC-20100901333

PATIENT
  Sex: Female

DRUGS (8)
  1. TRAMAL [Suspect]
     Indication: GOUT
     Route: 042
  2. MORPHINE [Suspect]
     Indication: GOUT
     Route: 042
  3. BALCOR [Concomitant]
     Indication: GOUT
  4. ZYLORIC [Concomitant]
     Indication: GOUT
     Route: 065
  5. LASIX [Concomitant]
     Route: 065
  6. MAREVAN [Concomitant]
     Indication: THROMBOSIS PROPHYLAXIS
     Route: 065
  7. LOSARTAN POTASSIUM [Concomitant]
     Indication: HYPERTENSION
     Route: 065
  8. COUMADIN [Concomitant]

REACTIONS (4)
  - COMA [None]
  - DELIRIUM [None]
  - HALLUCINATION [None]
  - LUNG INFECTION [None]
